FAERS Safety Report 15133498 (Version 3)
Quarter: 2018Q3

REPORT INFORMATION
  Report Type: Spontaneous
  Country: US (occurrence: US)
  Receive Date: 20180712
  Receipt Date: 20180907
  Transmission Date: 20181010
  Serious: No
  Sender: FDA-Public Use
  Company Number: US-PFIZER INC-2018280331

PATIENT
  Age: 64 Year
  Sex: Male

DRUGS (2)
  1. BOSULIF [Suspect]
     Active Substance: BOSUTINIB MONOHYDRATE
     Indication: EAR NEOPLASM
  2. BOSULIF [Suspect]
     Active Substance: BOSUTINIB MONOHYDRATE
     Indication: RESPIRATORY TRACT NEOPLASM
     Dosage: 400 MG, IN THE MORNING (AM) WITH BREAKFAST
     Dates: start: 20180627

REACTIONS (3)
  - Product use in unapproved indication [Unknown]
  - Blood uric acid increased [Unknown]
  - Gout [Unknown]

NARRATIVE: CASE EVENT DATE: 2018
